FAERS Safety Report 7509096-1 (Version None)
Quarter: 2011Q2

REPORT INFORMATION
  Report Type: 
  Country: None (occurrence: None)
  Receive Date: 20110527
  Receipt Date: 20110524
  Transmission Date: 20111010
  Serious: No
  Sender: FDA-Public Use
  Company Number: US-PFIZER INC-2011112221

PATIENT
  Sex: Female
  Weight: 56.689 kg

DRUGS (1)
  1. ADVIL LIQUI-GELS [Suspect]
     Indication: MYALGIA
     Dosage: TWO TABLETS OF 200 MG DAILY
     Route: 048
     Dates: end: 20110523

REACTIONS (3)
  - FATIGUE [None]
  - DIZZINESS [None]
  - SOMNOLENCE [None]
